FAERS Safety Report 11503507 (Version 5)
Quarter: 2018Q4

REPORT INFORMATION
  Report Type: Report from Study
  Country: US (occurrence: US)
  Receive Date: 20150914
  Receipt Date: 20181203
  Transmission Date: 20190204
  Serious: Yes (Other)
  Sender: FDA-Public Use
  Company Number: US-ASTELLAS-2015US025664

PATIENT
  Age: 74 Year
  Sex: Male

DRUGS (17)
  1. TAMSULOSIN [Concomitant]
     Active Substance: TAMSULOSIN
     Indication: PRODUCT USED FOR UNKNOWN INDICATION
     Dosage: 0.4 MG, ONCE DAILY
     Route: 048
  2. CASODEX [Concomitant]
     Active Substance: BICALUTAMIDE
     Indication: PRODUCT USED FOR UNKNOWN INDICATION
     Route: 048
  3. OMEPRAZOLE. [Concomitant]
     Active Substance: OMEPRAZOLE
     Indication: PRODUCT USED FOR UNKNOWN INDICATION
     Route: 048
  4. LUPRON [Concomitant]
     Active Substance: LEUPROLIDE ACETATE
     Indication: PROSTATE CANCER
     Dosage: UNK, OTHER (03 MONTH)
     Route: 065
  5. TRIMIX (ALPROSTADIL\PAPAVERINE\PHENTOLAMINE) [Concomitant]
     Active Substance: ALPROSTADIL\PAPAVERINE\PHENTOLAMINE
     Indication: PRODUCT USED FOR UNKNOWN INDICATION
     Dosage: 10 IU, EVERY OTHER DAY AS DIRECTED
     Route: 065
  6. ENALAPRIL MALEATE. [Concomitant]
     Active Substance: ENALAPRIL MALEATE
     Indication: PRODUCT USED FOR UNKNOWN INDICATION
     Route: 048
  7. LUPRON [Concomitant]
     Active Substance: LEUPROLIDE ACETATE
     Dosage: UNK, OTHER (06 MONTH)
     Route: 065
  8. B-COMPLEX                          /00003501/ [Concomitant]
     Active Substance: CYANOCOBALAMIN\DEXPANTHENOL\NIACINAMIDE\PYRIDOXINE HYDROCHLORIDE\RIBOFLAVIN 5^-PHOSPHATE SODIUM\THIAMINE HYDROCHLORIDE\VITAMIN B COMPLEX
     Indication: PRODUCT USED FOR UNKNOWN INDICATION
     Dosage: UNK UNK, UNKNOWN FREQ.
     Route: 065
  9. BICALUTAMIDE. [Concomitant]
     Active Substance: BICALUTAMIDE
     Indication: PRODUCT USED FOR UNKNOWN INDICATION
     Dosage: UNK UNK, UNKNOWN FREQ.
     Route: 048
  10. ATORVASTATIN [Concomitant]
     Active Substance: ATORVASTATIN
     Indication: PRODUCT USED FOR UNKNOWN INDICATION
     Route: 048
  11. VITAMIN D                          /00107901/ [Concomitant]
     Active Substance: ERGOCALCIFEROL
     Indication: PRODUCT USED FOR UNKNOWN INDICATION
     Dosage: UNK UNK, UNKNOWN FREQ.
     Route: 065
  12. TRABATANCO [Concomitant]
     Indication: PRODUCT USED FOR UNKNOWN INDICATION
     Dosage: UNK, UNKNOWN FREQ.
     Route: 065
  13. TRAVATAN [Concomitant]
     Active Substance: TRAVOPROST
     Indication: PRODUCT USED FOR UNKNOWN INDICATION
     Dosage: UNK UNK, ONCE DAILY
     Route: 047
  14. ENZALUTAMIDE [Suspect]
     Active Substance: ENZALUTAMIDE
     Indication: HORMONE-REFRACTORY PROSTATE CANCER
     Route: 048
     Dates: start: 20141216
  15. LOTRISONE [Concomitant]
     Active Substance: BETAMETHASONE DIPROPIONATE\CLOTRIMAZOLE
     Indication: PRODUCT USED FOR UNKNOWN INDICATION
     Dosage: UNK UNK, THRICE DAILY
     Route: 061
  16. ANTIVERT                           /00007101/ [Concomitant]
     Active Substance: MECLIZINE MONOHYDROCHLORIDE\NIACIN
     Indication: PRODUCT USED FOR UNKNOWN INDICATION
     Route: 048
  17. CIALIS [Concomitant]
     Active Substance: TADALAFIL
     Indication: ERECTILE DYSFUNCTION
     Route: 048

REACTIONS (8)
  - Hot flush [Unknown]
  - Diarrhoea [Unknown]
  - Amnesia [Not Recovered/Not Resolved]
  - Myalgia [Not Recovered/Not Resolved]
  - Muscle strain [Not Recovered/Not Resolved]
  - Dizziness [Unknown]
  - Fatigue [Unknown]
  - Dementia [Not Recovered/Not Resolved]

NARRATIVE: CASE EVENT DATE: 201607
